FAERS Safety Report 10370383 (Version 4)
Quarter: 2014Q4

REPORT INFORMATION
  Report Type: Spontaneous
  Country: US (occurrence: None)
  Receive Date: 20140805
  Receipt Date: 20141124
  Transmission Date: 20150528
  Serious: Yes (Hospitalization, Other)
  Sender: FDA-Public Use
  Company Number: KAD201407-000830

PATIENT
  Age: 62 Year
  Sex: Female
  Weight: 61.22 kg

DRUGS (5)
  1. RIBASPHERE RIBAPAK [Suspect]
     Active Substance: RIBAVIRIN
     Indication: HEPATITIS C
     Dosage: TABLET; 1000 MG TOTAL DAILY DOSE, 600 MG IN AM AND 400 MG IN PM, ORAL
     Route: 048
     Dates: start: 20140702, end: 20140723
  2. PEGASYS [Suspect]
     Active Substance: PEGINTERFERON ALFA-2A
     Indication: HEPATITIS C
     Dates: start: 20140702
  3. SYNTHROID (LEVOTHYROXINE) (LEVOTHYROXINE) [Concomitant]
  4. ATARAX [Concomitant]
     Active Substance: HYDROXYZINE\HYDROXYZINE HYDROCHLORIDE
  5. SOVALDI [Suspect]
     Active Substance: SOFOSBUVIR
     Indication: HEPATITIS C
     Route: 048
     Dates: start: 20140702, end: 20140925

REACTIONS (7)
  - Anaemia [None]
  - Chest pain [None]
  - Hypotension [None]
  - Dyspnoea [None]
  - Dizziness [None]
  - Palpitations [None]
  - Asthenia [None]

NARRATIVE: CASE EVENT DATE: 20140702
